FAERS Safety Report 4804036-8 (Version None)
Quarter: 2005Q4

REPORT INFORMATION
  Report Type: 
  Country: None (occurrence: None)
  Receive Date: 20051018
  Receipt Date: 20051018
  Transmission Date: 20060501
  Serious: Yes (Life-Threatening, Hospitalization, Disabling)
  Sender: FDA-Public Use
  Company Number: None

PATIENT
  Age: 49 Year
  Sex: Male
  Weight: 98.8842 kg

DRUGS (2)
  1. VIOXX [Suspect]
     Indication: CONTUSION
     Dosage: ONCE DAILY PO X2
     Route: 048
     Dates: start: 20021201
  2. VIOXX [Suspect]
     Indication: MUSCLE STRAIN
     Dosage: ONCE DAILY PO
     Route: 048
     Dates: start: 20031122, end: 20031211

REACTIONS (2)
  - CEREBROVASCULAR ACCIDENT [None]
  - TRANSIENT ISCHAEMIC ATTACK [None]
